FAERS Safety Report 9547738 (Version 2)
Quarter: 2013Q4

REPORT INFORMATION
  Report Type: Spontaneous
  Country: CH (occurrence: None)
  Receive Date: 20130920
  Receipt Date: 20131023
  Transmission Date: 20140711
  Serious: Yes (Other)
  Sender: FDA-Public Use
  Company Number: 20130489

PATIENT
  Sex: Female
  Weight: 61 kg

DRUGS (2)
  1. FERINJECT [Suspect]
     Indication: ANAEMIA
     Route: 042
     Dates: start: 20130821, end: 20130821
  2. HUMIRA (ADALIMUMAB) OPEN LABEL [Concomitant]

REACTIONS (1)
  - Bronchospasm [None]
